FAERS Safety Report 6665562-2 (Version None)
Quarter: 2010Q2

REPORT INFORMATION
  Report Type: 
  Country: None (occurrence: None)
  Receive Date: 20100402
  Receipt Date: 20100330
  Transmission Date: 20101027
  Serious: Yes (Death)
  Sender: FDA-Public Use
  Company Number: KR-CELGENEUS-090-CCAZA-10032809

PATIENT

DRUGS (1)
  1. AZACITIDINE [Suspect]
     Indication: MULTIPLE MYELOMA
     Route: 058
     Dates: start: 20080229

REACTIONS (1)
  - DEATH [None]
